FAERS Safety Report 10247210 (Version 1)
Quarter: 2014Q2

REPORT INFORMATION
  Report Type: Spontaneous
  Country: US (occurrence: US)
  Receive Date: 20140619
  Receipt Date: 20140619
  Transmission Date: 20141212
  Serious: Yes (Other)
  Sender: FDA-Public Use
  Company Number: US-GLAXOSMITHKLINE-A1073244A

PATIENT
  Age: 86 Year
  Sex: Female
  Weight: 67.5 kg

DRUGS (10)
  1. VOTRIENT [Suspect]
     Indication: RENAL CANCER
     Dosage: 800MG PER DAY
     Route: 048
     Dates: start: 20140409
  2. AMLODIPINE [Concomitant]
  3. ASPIRIN [Concomitant]
  4. ATENOLOL [Concomitant]
  5. FLUOXETINE [Concomitant]
  6. LORAZEPAM [Concomitant]
  7. MULTIVITAMIN [Concomitant]
  8. RANITIDINE [Concomitant]
  9. SULFAMETHOXAZOLE WITH TRIMETHOPRIM [Concomitant]
  10. SYNTHROID [Concomitant]

REACTIONS (8)
  - Abasia [Recovering/Resolving]
  - Diplegia [Recovering/Resolving]
  - Therapy cessation [Unknown]
  - Mobility decreased [Recovering/Resolving]
  - Hypoaesthesia [Recovering/Resolving]
  - Nausea [Recovering/Resolving]
  - Retching [Recovering/Resolving]
  - Muscular weakness [Recovering/Resolving]
